FAERS Safety Report 10057949 (Version 2)
Quarter: 2014Q3

REPORT INFORMATION
  Report Type: Spontaneous
  Country: IT (occurrence: None)
  Receive Date: 20140402
  Receipt Date: 20140722
  Transmission Date: 20150326
  Serious: Yes (Hospitalization)
  Sender: FDA-Public Use
  Company Number: AUR-APL-2014-03877

PATIENT
  Age: 48 Year
  Sex: Female

DRUGS (2)
  1. SUPRADYN [Suspect]
     Active Substance: ASCORBIC ACID\MINERALS\VITAMINS
     Indication: PRODUCT USED FOR UNKNOWN INDICATION
     Dosage: 1 DF, TOTAL
     Route: 048
     Dates: start: 20140313, end: 20140313
  2. AMOXICILLINA TABLETS 1G (AMOXICILLIN) TABLET, 1G [Suspect]
     Active Substance: AMOXICILLIN
     Indication: PRODUCT USED FOR UNKNOWN INDICATION
     Dosage: 1 DF, TOTAL
     Route: 048
     Dates: start: 20140313, end: 20140313

REACTIONS (2)
  - Face oedema [None]
  - Erythema [None]

NARRATIVE: CASE EVENT DATE: 20140313
